FAERS Safety Report 19265456 (Version 1)
Quarter: 2021Q2

REPORT INFORMATION
  Report Type: Spontaneous
  Country: US (occurrence: US)
  Receive Date: 20210517
  Receipt Date: 20210517
  Transmission Date: 20210717
  Serious: Yes (Other)
  Sender: FDA-Public Use
  Company Number: US-PURDUE-USA-2021-0257465

PATIENT
  Sex: Female

DRUGS (1)
  1. OXYCONTIN [Suspect]
     Active Substance: OXYCODONE HYDROCHLORIDE
     Indication: PAIN
     Dosage: 40 MG, Q4H
     Route: 048

REACTIONS (5)
  - Inadequate analgesia [Unknown]
  - Abdominal discomfort [Unknown]
  - Drug detoxification [Unknown]
  - Off label use [Unknown]
  - Tremor [Unknown]
